FAERS Safety Report 9789718 (Version 1)
Quarter: 2013Q4

REPORT INFORMATION
  Report Type: Spontaneous
  Country: US (occurrence: None)
  Receive Date: 20131227
  Receipt Date: 20131227
  Transmission Date: 20140711
  Serious: Yes (Other)
  Sender: FDA-Public Use
  Company Number: 2013-00159

PATIENT
  Sex: Male

DRUGS (1)
  1. UNSPECIFIED ZICAM PRODUCT [Suspect]
     Indication: NASOPHARYNGITIS

REACTIONS (5)
  - Ageusia [None]
  - Hypoaesthesia oral [None]
  - Hypoaesthesia oral [None]
  - Speech disorder [None]
  - Mastication disorder [None]
